FAERS Safety Report 17542143 (Version 1)
Quarter: 2020Q1

REPORT INFORMATION
  Report Type: Spontaneous
  Country: US (occurrence: US)
  Receive Date: 20200313
  Receipt Date: 20200313
  Transmission Date: 20200409
  Serious: No
  Sender: FDA-Public Use
  Company Number: US-FDC LIMITED-2019RIS00609

PATIENT
  Sex: Male

DRUGS (3)
  1. OFLOXACIN. [Suspect]
     Active Substance: OFLOXACIN
     Indication: EYE INFECTION
  2. OFLOXACIN. [Suspect]
     Active Substance: OFLOXACIN
     Indication: EAR INFECTION
     Dosage: UNK
     Route: 047
  3. OFLOXACIN. [Suspect]
     Active Substance: OFLOXACIN
     Indication: OTORRHOEA
     Dosage: UNK
     Route: 001

REACTIONS (3)
  - Eye disorder [Unknown]
  - Product use issue [Recovered/Resolved]
  - Product use in unapproved indication [Recovered/Resolved]
